FAERS Safety Report 5733232-0 (Version None)
Quarter: 2008Q2

REPORT INFORMATION
  Report Type: 
  Country: None (occurrence: None)
  Receive Date: 20080509
  Receipt Date: 20080502
  Transmission Date: 20081010
  Serious: Yes (Death, Congenital Anomaly)
  Sender: FDA-Public Use
  Company Number: GB-WYE-G01490708

PATIENT

DRUGS (4)
  1. EFFEXOR [Suspect]
     Indication: MENTAL DISORDER
     Dosage: 150 MG FREQUENCY UNKNOWN
     Route: 064
     Dates: start: 20030101
  2. CODEINE SUL TAB [Concomitant]
     Indication: PAIN
     Dosage: 60 MG FREQUENCY UNKNOWN
     Route: 064
     Dates: start: 20080201, end: 20080201
  3. LACTULOSE [Concomitant]
     Indication: CONSTIPATION
     Dosage: 3.25 MG FREQUENCY UNKNOWN
     Route: 064
     Dates: start: 20080201, end: 20080201
  4. OLANZAPINE [Suspect]
     Indication: MENTAL DISORDER
     Dosage: 15 MG FREQUENCY UNKNOWN
     Route: 064
     Dates: start: 20030101

REACTIONS (2)
  - CONGENITAL DIAPHRAGMATIC ANOMALY [None]
  - NEONATAL DISORDER [None]
